FAERS Safety Report 12831260 (Version 1)
Quarter: 2016Q4

REPORT INFORMATION
  Report Type: Spontaneous
  Country: US (occurrence: US)
  Receive Date: 20161008
  Receipt Date: 20161008
  Transmission Date: 20170207
  Serious: No
  Sender: FDA-Public Use
  Company Number: US-009507513-1610USA000377

PATIENT
  Age: 55 Year
  Sex: Female
  Weight: 85.71 kg

DRUGS (1)
  1. BELSOMRA [Suspect]
     Active Substance: SUVOREXANT
     Indication: INSOMNIA
     Dosage: 20 MG, FREQUENCY NOT REPORTED
     Route: 048

REACTIONS (1)
  - Hallucination [Unknown]
